FAERS Safety Report 4911756-3 (Version None)
Quarter: 2006Q1

REPORT INFORMATION
  Report Type: 
  Country: None (occurrence: None)
  Receive Date: 20060215
  Receipt Date: 20060210
  Transmission Date: 20060701
  Serious: Yes (Other)
  Sender: FDA-Public Use
  Company Number: PHEH2006US02015

PATIENT
  Sex: Male

DRUGS (2)
  1. ANTIDEPRESSANTS [Suspect]
     Route: 048
  2. LAMISIL [Suspect]
     Route: 048

REACTIONS (3)
  - DEPRESSION [None]
  - DRUG INTERACTION [None]
  - SUICIDAL IDEATION [None]
